FAERS Safety Report 20092323 (Version 1)
Quarter: 2021Q4

REPORT INFORMATION
  Report Type: Spontaneous
  Country: US (occurrence: None)
  Receive Date: 20211119
  Receipt Date: 20211119
  Transmission Date: 20220303
  Serious: Yes (Hospitalization)
  Sender: FDA-Public Use
  Company Number: None

PATIENT
  Age: 90 Year
  Sex: Male
  Weight: 93.7 kg

DRUGS (14)
  1. CASIRIVIMAB\IMDEVIMAB [Suspect]
     Active Substance: CASIRIVIMAB\IMDEVIMAB
     Indication: COVID-19
     Dates: start: 20211115, end: 20211115
  2. ACETAMINOPHEN [Concomitant]
     Active Substance: ACETAMINOPHEN
  3. ASCORBIC ACID [Concomitant]
     Active Substance: ASCORBIC ACID
  4. ASPIRIN [Concomitant]
     Active Substance: ASPIRIN
  5. CALCIUM\VITAMIN D [Concomitant]
     Active Substance: CALCIUM\VITAMIN D
  6. CYANOCOBALAMIN [Concomitant]
     Active Substance: CYANOCOBALAMIN
  7. DILTIAZEM [Concomitant]
     Active Substance: DILTIAZEM
  8. DONEPEZIL [Concomitant]
     Active Substance: DONEPEZIL
  9. HYDROCHLOROTHIAZIDE\TRIAMTERENE [Concomitant]
     Active Substance: HYDROCHLOROTHIAZIDE\TRIAMTERENE
  10. LOSARTAN [Concomitant]
     Active Substance: LOSARTAN
  11. MELOXICAM [Concomitant]
     Active Substance: MELOXICAM
  12. OMEPRAZOLE [Concomitant]
     Active Substance: OMEPRAZOLE
  13. PRAVASTATIN [Concomitant]
     Active Substance: PRAVASTATIN
  14. VITAMIN E [Concomitant]
     Active Substance: .ALPHA.-TOCOPHEROL

REACTIONS (2)
  - Cough [None]
  - Oxygen saturation decreased [None]

NARRATIVE: CASE EVENT DATE: 20211115
